FAERS Safety Report 6940931-1 (Version None)
Quarter: 2010Q3

REPORT INFORMATION
  Report Type: 
  Country: None (occurrence: None)
  Receive Date: 20100825
  Receipt Date: 20100817
  Transmission Date: 20110219
  Serious: Yes (Hospitalization)
  Sender: FDA-Public Use
  Company Number: A0791348A

PATIENT
  Age: 63 Year
  Sex: Male

DRUGS (7)
  1. AVANDIA [Suspect]
     Indication: DIABETES MELLITUS
     Dosage: 8U SINGLE DOSE
     Route: 065
     Dates: start: 19990501, end: 20030101
  2. ZOCOR [Concomitant]
  3. GLYBURIDE [Concomitant]
  4. GLUCOPHAGE [Concomitant]
  5. LASIX [Concomitant]
  6. COZAAR [Concomitant]
  7. NITROGLYCERIN [Concomitant]

REACTIONS (6)
  - CARDIAC FAILURE CONGESTIVE [None]
  - CARDIOVASCULAR DISORDER [None]
  - CEREBROVASCULAR ACCIDENT [None]
  - CORONARY ARTERY DISEASE [None]
  - DYSPNOEA [None]
  - MYOCARDIAL INFARCTION [None]
